FAERS Safety Report 6132662-5 (Version None)
Quarter: 2009Q1

REPORT INFORMATION
  Report Type: 
  Country: None (occurrence: None)
  Receive Date: 20090324
  Receipt Date: 20090311
  Transmission Date: 20090719
  Serious: Yes (Other)
  Sender: FDA-Public Use
  Company Number: US-1168935

PATIENT

DRUGS (1)
  1. CIPROFLOXACIN [Suspect]
     Indication: ANTIBIOTIC PROPHYLAXIS
     Dosage: OPHTHALMIC
     Route: 047

REACTIONS (3)
  - ANTERIOR CHAMBER DISORDER [None]
  - HYPERSENSITIVITY [None]
  - PRODUCT QUALITY ISSUE [None]
